FAERS Safety Report 8295982-4 (Version None)
Quarter: 2012Q2

REPORT INFORMATION
  Report Type: 
  Country: None (occurrence: None)
  Receive Date: 20120418
  Receipt Date: 20120411
  Transmission Date: 20120825
  Serious: Yes (Life-Threatening, Hospitalization, Other)
  Sender: FDA-Public Use
  Company Number: US-NAPPMUNDI-USA-2012-0084598

PATIENT
  Sex: Female

DRUGS (6)
  1. BUTRANS [Suspect]
     Indication: OSTEOARTHRITIS
     Dosage: 10 MCG/HR, WEEKLY
     Route: 062
     Dates: start: 20120117, end: 20120312
  2. TRAMADOL HCL [Suspect]
     Indication: BREAKTHROUGH PAIN
  3. DILANTIN [Suspect]
     Indication: CONVULSION
     Dosage: 160MG EVERY AM AND 200MG EVERY PM
     Dates: start: 20070809
  4. MORPHINE SULFATE [Suspect]
     Indication: BREAKTHROUGH PAIN
     Dosage: UNK
  5. TRAMADOL HCL [Suspect]
     Indication: OSTEOARTHRITIS
     Dosage: 50 MG, Q6H
     Dates: start: 20120214
  6. BUTRANS [Suspect]
     Indication: BREAKTHROUGH PAIN

REACTIONS (3)
  - DRUG LEVEL DECREASED [None]
  - PNEUMONIA [None]
  - CONVULSION [None]
